FAERS Safety Report 18659013 (Version 1)
Quarter: 2020Q4

REPORT INFORMATION
  Report Type: Spontaneous
  Country: US (occurrence: US)
  Receive Date: 20201223
  Receipt Date: 20201223
  Transmission Date: 20210114
  Serious: Yes (Other)
  Sender: FDA-Public Use
  Company Number: US-PURDUE-USA-2020-0175038

PATIENT
  Sex: Female

DRUGS (10)
  1. DILAUDID [Suspect]
     Active Substance: HYDROMORPHONE HYDROCHLORIDE
     Indication: PAIN MANAGEMENT
     Dosage: UNK
     Route: 048
     Dates: start: 2009
  2. OXYIR [Suspect]
     Active Substance: OXYCODONE HYDROCHLORIDE
     Indication: PAIN MANAGEMENT
     Dosage: UNK
     Route: 065
  3. HYDROMORPHONE TABLETS [Suspect]
     Active Substance: HYDROMORPHONE
     Indication: PAIN MANAGEMENT
     Dosage: UNK
     Route: 048
     Dates: start: 2009
  4. HYDROMORPHONE HCL ORAL SOLUTION (RHODES) [Suspect]
     Active Substance: HYDROMORPHONE HYDROCHLORIDE
     Indication: PAIN MANAGEMENT
     Dosage: UNK
     Route: 048
     Dates: start: 2009
  5. OXYCODONE/ ACETAMINOPHEN TABLETS [Suspect]
     Active Substance: ACETAMINOPHEN\OXYCODONE HYDROCHLORIDE
     Indication: PAIN MANAGEMENT
     Dosage: UNK
     Route: 048
     Dates: start: 2009
  6. MORPHINE SULFATE EXTENDED-RELEASE TABLETS (RHODES 74-769, 74-862) [Suspect]
     Active Substance: MORPHINE SULFATE
     Indication: PAIN MANAGEMENT
     Dosage: UNK
     Route: 048
     Dates: start: 2009
  7. OXYCODONE HCL TABLETS (RHODES 91-490) [Suspect]
     Active Substance: OXYCODONE HYDROCHLORIDE
     Indication: PAIN MANAGEMENT
     Dosage: UNK
     Route: 048
     Dates: start: 2009
  8. OXYCODONE HCL CR TABLETS (SIMILAR TO NDA 22-272) [Suspect]
     Active Substance: OXYCODONE HYDROCHLORIDE
     Indication: PAIN MANAGEMENT
     Dosage: UNK
     Route: 048
     Dates: start: 2009
  9. OXYCONTIN [Suspect]
     Active Substance: OXYCODONE HYDROCHLORIDE
     Indication: PAIN MANAGEMENT
     Dosage: UNK
     Route: 048
     Dates: start: 2009
  10. HYDROCODONE BITARTRATE AND ACETAMINOPHEN [Suspect]
     Active Substance: ACETAMINOPHEN\HYDROCODONE BITARTRATE
     Indication: PAIN MANAGEMENT
     Dosage: UNK
     Route: 048
     Dates: start: 2009

REACTIONS (32)
  - Fall [Unknown]
  - Unevaluable event [Unknown]
  - Constipation [Unknown]
  - Nausea [Unknown]
  - Hypertension [Unknown]
  - Acne [Unknown]
  - Drug dependence [Unknown]
  - Cholecystectomy [Unknown]
  - Heart rate increased [Unknown]
  - Dizziness [Unknown]
  - Tremor [Unknown]
  - Weight increased [Unknown]
  - Pain [Unknown]
  - Migraine [Unknown]
  - Palpitations [Unknown]
  - Sexual dysfunction [Unknown]
  - Muscle twitching [Unknown]
  - Decreased appetite [Unknown]
  - Tooth infection [Unknown]
  - Bladder disorder [Unknown]
  - Disturbance in attention [Unknown]
  - Hypopnoea [Unknown]
  - Insomnia [Unknown]
  - Fatigue [Unknown]
  - Muscle atrophy [Unknown]
  - Drug withdrawal syndrome [Unknown]
  - Depression [Unknown]
  - Emotional distress [None]
  - Dental caries [Unknown]
  - Hyperhidrosis [Unknown]
  - Dry mouth [Unknown]
  - Coordination abnormal [Unknown]
